FAERS Safety Report 20307403 (Version 1)
Quarter: 2022Q1

REPORT INFORMATION
  Report Type: Other
  Country: GB (occurrence: None)
  Receive Date: 20220107
  Receipt Date: 20220107
  Transmission Date: 20220423
  Serious: Yes (Hospitalization, Other)
  Sender: FDA-Public Use
  Company Number: GB-ROCHE-2804117

PATIENT
  Age: 10 Year
  Sex: Female
  Weight: 25.4 kg

DRUGS (6)
  1. RISDIPLAM [Suspect]
     Active Substance: RISDIPLAM
     Indication: Spinal muscular atrophy
     Route: 048
     Dates: start: 20210305
  2. SODIUM PICOSULFATE [Concomitant]
     Active Substance: SODIUM PICOSULFATE
     Indication: Constipation
     Dosage: 3-5 MG
     Dates: start: 20210329
  3. AZITHROMYCIN [Concomitant]
     Active Substance: AZITHROMYCIN
     Indication: Antibiotic prophylaxis
     Dosage: MONDAY, WEDNESDAY, FRIDAY
  4. SALINE [Concomitant]
     Active Substance: SODIUM CHLORIDE
     Dosage: PRN BUT CURRENTLY INCREASED DUE TO CHEST INFECTION
  5. ALBUTEROL [Concomitant]
     Active Substance: ALBUTEROL
     Dosage: PRN BUT CURRENTLY INCREASED DUE TO CHEST INFECTION
  6. MELATONIN [Concomitant]
     Active Substance: MELATONIN

REACTIONS (3)
  - Secretion discharge [Not Recovered/Not Resolved]
  - Lower respiratory tract infection [Recovered/Resolved]
  - Oral discharge [Not Recovered/Not Resolved]

NARRATIVE: CASE EVENT DATE: 20210305
